FAERS Safety Report 9258593 (Version 1)
Quarter: 2013Q2

REPORT INFORMATION
  Report Type: Spontaneous
  Country: US (occurrence: US)
  Receive Date: 20130426
  Receipt Date: 20130426
  Transmission Date: 20140414
  Serious: No
  Sender: FDA-Public Use
  Company Number: US-PFIZER INC-2013126871

PATIENT
  Age: 45 Year
  Sex: Male

DRUGS (2)
  1. MS CONTIN [Suspect]
     Indication: PAIN
     Dosage: 100 MG, 1X/DAY
  2. FENTANYL [Suspect]
     Indication: PAIN
     Dosage: 200 UG, 1X/DAY

REACTIONS (1)
  - Drug ineffective [Unknown]
